FAERS Safety Report 14093335 (Version 1)
Quarter: 2017Q4

REPORT INFORMATION
  Report Type: Spontaneous
  Country: US (occurrence: US)
  Receive Date: 20171016
  Receipt Date: 20171016
  Transmission Date: 20180321
  Serious: Yes (Other)
  Sender: FDA-Public Use
  Company Number: None

PATIENT
  Age: 58 Year
  Sex: Female
  Weight: 65.25 kg

DRUGS (7)
  1. MILK THISTLE [Concomitant]
     Active Substance: DIETARY SUPPLEMENT\HERBALS\MILK THISTLE
  2. DEPAKOTE [Suspect]
     Active Substance: DIVALPROEX SODIUM
     Indication: FOCAL DYSCOGNITIVE SEIZURES
     Dosage: ?          QUANTITY:3 TABLET(S);OTHER FREQUENCY:3 MORN 2 NOON 3 NI;?
     Route: 048
  3. BILBERRY [Concomitant]
     Active Substance: BILBERRY
  4. TAURINE [Concomitant]
     Active Substance: TAURINE
  5. ALIVE VITAMIN +50 WOMEN [Concomitant]
  6. SUNDOWN NATURALS MINDFUL WELLNESS [Concomitant]
  7. VITAMIN B12 [Concomitant]
     Active Substance: CYANOCOBALAMIN

REACTIONS (1)
  - Angle closure glaucoma [None]

NARRATIVE: CASE EVENT DATE: 20150505
